FAERS Safety Report 17030836 (Version 1)
Quarter: 2019Q4

REPORT INFORMATION
  Report Type: Spontaneous
  Country: PR (occurrence: US)
  Receive Date: 20191114
  Receipt Date: 20191114
  Transmission Date: 20200122
  Serious: Yes (Hospitalization)
  Sender: FDA-Public Use
  Company Number: US-ALLERGAN-1946103US

PATIENT
  Sex: Female

DRUGS (1)
  1. ACETIC ACID;HYDROCORTISONE UNK [Suspect]
     Active Substance: ACETIC ACID\HYDROCORTISONE
     Indication: EAR PAIN
     Dosage: UNK
     Route: 061

REACTIONS (4)
  - Otitis externa [Unknown]
  - Dermatitis contact [Unknown]
  - Hypersensitivity [Unknown]
  - Off label use [Unknown]
